FAERS Safety Report 6095965-9 (Version None)
Quarter: 2009Q1

REPORT INFORMATION
  Report Type: 
  Country: None (occurrence: None)
  Receive Date: 20090225
  Receipt Date: 20090225
  Transmission Date: 20090719
  Serious: No
  Sender: FDA-Public Use
  Company Number: None

PATIENT
  Age: 63 Year
  Sex: Female
  Weight: 63.5036 kg

DRUGS (2)
  1. LUMIGAN [Suspect]
     Indication: GLAUCOMA
     Dosage: 1 DROP 1X A DAY EA. EYE
     Route: 031
     Dates: start: 20070501
  2. COSOPT [Suspect]
     Dosage: 1 DROP 2X A DAY EA. EYE
     Dates: start: 20051201

REACTIONS (2)
  - DRUG HYPERSENSITIVITY [None]
  - HYPOAESTHESIA [None]
